FAERS Safety Report 14193017 (Version 1)
Quarter: 2017Q4

REPORT INFORMATION
  Report Type: Spontaneous
  Country: US (occurrence: US)
  Receive Date: 20171116
  Receipt Date: 20171116
  Transmission Date: 20180321
  Serious: No
  Sender: FDA-Public Use
  Company Number: US-SHIRE-US201720214

PATIENT
  Age: 85 Year
  Sex: Female

DRUGS (1)
  1. GAMMAGARD LIQUID [Suspect]
     Active Substance: HUMAN IMMUNOGLOBULIN G
     Indication: PRODUCT USED FOR UNKNOWN INDICATION
     Dosage: 30 G, UNK
     Route: 042
     Dates: start: 2015

REACTIONS (7)
  - Malaise [Unknown]
  - Nausea [Unknown]
  - Product quality issue [Unknown]
  - Cold sweat [Unknown]
  - Chills [Unknown]
  - Blood pressure decreased [Recovering/Resolving]
  - Dizziness [Unknown]
